FAERS Safety Report 9733512 (Version 1)
Quarter: 2013Q4

REPORT INFORMATION
  Report Type: Spontaneous
  Country: CA (occurrence: CA)
  Receive Date: 20131205
  Receipt Date: 20131205
  Transmission Date: 20140711
  Serious: Yes (Other)
  Sender: FDA-Public Use
  Company Number: CA-B.I. PHARMACEUTICALS,INC./RIDGEFIELD-2013-BI-39897CN

PATIENT
  Age: 85 Year
  Sex: Female
  Weight: 75 kg

DRUGS (9)
  1. PRADAXA [Suspect]
     Dosage: 220 MG
     Route: 048
  2. ATORVASTATIN CALCIUM [Concomitant]
  3. ATROVENT [Concomitant]
  4. ELTROXIN [Concomitant]
  5. METOPROLOL [Concomitant]
  6. NITRO-DUR [Concomitant]
     Dosage: FORMULATION: PATCH, EXTENDED RELEASE
  7. NITROGLYCERIN [Concomitant]
     Dosage: FORMULATION: SPRAY (NOT INHALATION)
  8. SPIRONOLACTONE [Concomitant]
  9. VALSARTAN [Concomitant]

REACTIONS (4)
  - Pancytopenia [Not Recovered/Not Resolved]
  - Haemoglobin decreased [Not Recovered/Not Resolved]
  - Platelet count decreased [Not Recovered/Not Resolved]
  - White blood cell count decreased [Not Recovered/Not Resolved]
